FAERS Safety Report 12346557 (Version 1)
Quarter: 2016Q2

REPORT INFORMATION
  Report Type: Spontaneous
  Country: FR (occurrence: FR)
  Receive Date: 20160509
  Receipt Date: 20160509
  Transmission Date: 20160815
  Serious: Yes (Other)
  Sender: FDA-Public Use
  Company Number: FR-BAXTER-2016BAX022464

PATIENT
  Age: 24 Year
  Sex: Male

DRUGS (21)
  1. UROMITEXAN 1 G/10 ML, SOLUTION INJECTABLE POUR PERFUSION EN FLACON [Suspect]
     Active Substance: MESNA
     Indication: CHEMOTHERAPY TOXICITY ATTENUATION
     Dosage: FIRST COURSE OF BEACOPP PROTOCOL
     Route: 042
     Dates: start: 20151005, end: 20151012
  2. ENDOXAN 1000 MG, POUDRE POUR SOLUTION INJECTABLE [Suspect]
     Active Substance: CYCLOPHOSPHAMIDE
     Indication: HODGKIN^S DISEASE
     Dosage: FIRST COURSE OF BEACOPP PROTOCOL
     Route: 042
     Dates: start: 20151005, end: 20151012
  3. PREDNISONE. [Concomitant]
     Active Substance: PREDNISONE
     Indication: PRODUCT USED FOR UNKNOWN INDICATION
     Dosage: 3RD COURSE
     Route: 065
     Dates: start: 20151125
  4. PRIMPERAN [Suspect]
     Active Substance: METOCLOPRAMIDE HYDROCHLORIDE
     Indication: PROPHYLAXIS OF NAUSEA AND VOMITING
     Dosage: IV INFUSION, SECOND COURSE
     Route: 042
     Dates: start: 20151027, end: 20151027
  5. DOXORUBICIN HYDROCHLORIDE. [Suspect]
     Active Substance: DOXORUBICIN HYDROCHLORIDE
     Indication: HODGKIN^S DISEASE
     Dosage: FIRST COURSE OF BEACOPP PROTOCOL
     Route: 042
     Dates: start: 20151005, end: 20151012
  6. POLARAMINE [Concomitant]
     Active Substance: DEXCHLORPHENIRAMINE MALEATE
     Dosage: 3RD COURSE
     Route: 065
     Dates: start: 20151127
  7. DOXORUBICIN HYDROCHLORIDE. [Suspect]
     Active Substance: DOXORUBICIN HYDROCHLORIDE
     Dosage: IV INFUSION, DAY 1 OF THE SECOND COURSE
     Route: 042
     Dates: start: 20151027, end: 20151027
  8. ZOPHREN [Concomitant]
     Active Substance: ONDANSETRON
     Indication: PRODUCT USED FOR UNKNOWN INDICATION
     Dosage: 3 COURSE
     Route: 065
     Dates: start: 20151126
  9. ETOPOSIDE. [Suspect]
     Active Substance: ETOPOSIDE
     Indication: HODGKIN^S DISEASE
     Dosage: FIRST COURSE OF BEACOPP PROTOCOL
     Route: 042
     Dates: start: 20151005, end: 20151012
  10. ETOPOSIDE. [Suspect]
     Active Substance: ETOPOSIDE
     Dosage: IV INFUSION, DAY 1 OF SECOND COURSE
     Route: 042
     Dates: start: 20151027, end: 20151027
  11. VINCRISTINE [Suspect]
     Active Substance: VINCRISTINE
     Indication: HODGKIN^S DISEASE
     Dosage: FIRST COURSE OF BEACOPP PROTOCOL
     Route: 065
     Dates: start: 20151005, end: 20151012
  12. BLEOMYCIN [Suspect]
     Active Substance: BLEOMYCIN SULFATE
     Indication: HODGKIN^S DISEASE
     Dosage: FIRST COURSE OF BEACOPP PROTOCOL
     Route: 065
     Dates: start: 20151005, end: 20151012
  13. ESOMEPRAZOLE [Concomitant]
     Active Substance: ESOMEPRAZOLE
     Indication: PRODUCT USED FOR UNKNOWN INDICATION
     Dosage: LONG-TERM
     Route: 065
  14. PREDNISONE. [Concomitant]
     Active Substance: PREDNISONE
     Dosage: 3RD COURSE
     Route: 065
     Dates: start: 20151126
  15. PREDNISONE. [Concomitant]
     Active Substance: PREDNISONE
     Dosage: 3RD COURSE
     Route: 065
     Dates: start: 20151127
  16. UROMITEXAN 1 G/10 ML, SOLUTION INJECTABLE POUR PERFUSION EN FLACON [Suspect]
     Active Substance: MESNA
     Dosage: IV INFUSION, DAY 1 OF THE SECOND COURSE
     Route: 042
     Dates: start: 20151027, end: 20151027
  17. ENDOXAN 1000 MG, POUDRE POUR SOLUTION INJECTABLE [Suspect]
     Active Substance: CYCLOPHOSPHAMIDE
     Dosage: IV INFUSION, DAY 1 OF THE SECOND COURSE
     Route: 042
     Dates: start: 20151027, end: 20151027
  18. POLARAMINE [Concomitant]
     Active Substance: DEXCHLORPHENIRAMINE MALEATE
     Dosage: 3RD COURSE
     Route: 065
     Dates: start: 20151126
  19. POLARAMINE [Concomitant]
     Active Substance: DEXCHLORPHENIRAMINE MALEATE
     Indication: PRODUCT USED FOR UNKNOWN INDICATION
     Dosage: 3RD COURSE
     Route: 065
     Dates: start: 20151125
  20. PRIMPERAN [Suspect]
     Active Substance: METOCLOPRAMIDE HYDROCHLORIDE
     Indication: PREMEDICATION
  21. CORTANCYL [Concomitant]
     Active Substance: PREDNISONE
     Indication: PRODUCT USED FOR UNKNOWN INDICATION
     Dosage: LONG-TERM
     Route: 065

REACTIONS (1)
  - Urticaria [Recovered/Resolved]

NARRATIVE: CASE EVENT DATE: 20151027
